FAERS Safety Report 9322496 (Version 1)
Quarter: 2013Q2

REPORT INFORMATION
  Report Type: Spontaneous
  Country: JP (occurrence: JP)
  Receive Date: 20130531
  Receipt Date: 20130531
  Transmission Date: 20140414
  Serious: Yes (Hospitalization)
  Sender: FDA-Public Use
  Company Number: PHHY2013JP053492

PATIENT
  Age: 63 Year
  Sex: Female

DRUGS (3)
  1. FAMOTIDINE [Suspect]
  2. DOXAZOSIN [Concomitant]
  3. ASPIRIN [Concomitant]

REACTIONS (6)
  - Tubulointerstitial nephritis [Recovering/Resolving]
  - Pyrexia [Recovered/Resolved]
  - Flank pain [Unknown]
  - Proteinuria [Recovering/Resolving]
  - Haematuria [Recovering/Resolving]
  - Metabolic acidosis [Recovering/Resolving]
